FAERS Safety Report 6864804-8 (Version None)
Quarter: 2010Q3

REPORT INFORMATION
  Report Type: 
  Country: None (occurrence: None)
  Receive Date: 20100721
  Receipt Date: 20080403
  Transmission Date: 20110219
  Serious: No
  Sender: FDA-Public Use
  Company Number: US-PFIZER INC-2008030405

PATIENT
  Sex: Female
  Weight: 52.2 kg

DRUGS (13)
  1. CHANTIX [Suspect]
     Indication: SMOKING CESSATION THERAPY
     Dates: start: 20080101, end: 20080101
  2. SIMVASTATIN [Concomitant]
  3. LEVOXYL [Concomitant]
  4. ATENOLOL [Concomitant]
  5. KLOR-CON [Concomitant]
  6. HYDROCHLOROTHIAZIDE [Concomitant]
  7. IBANDRONATE SODIUM [Concomitant]
  8. PREMARIN [Concomitant]
  9. OXYBUTIN [Concomitant]
  10. LORAZEPAM [Concomitant]
  11. CALCIUM [Concomitant]
  12. CENTRUM SILVER [Concomitant]
  13. VICODIN [Concomitant]

REACTIONS (1)
  - NAUSEA [None]
